FAERS Safety Report 7090667-4 (Version None)
Quarter: 2010Q4

REPORT INFORMATION
  Report Type: 
  Country: None (occurrence: None)
  Receive Date: 20101012
  Receipt Date: 20100310
  Transmission Date: 20110411
  Serious: Yes (Death)
  Sender: FDA-Public Use
  Company Number: 1000012425

PATIENT
  Age: 65 Year
  Sex: Male

DRUGS (1)
  1. LEXAPRO [Suspect]
     Indication: CARDIAC DISORDER
     Dosage: ORAL
     Route: 048
     Dates: start: 20040101, end: 20091001

REACTIONS (1)
  - COMPLETED SUICIDE [None]
